FAERS Safety Report 9154060 (Version 1)
Quarter: 2013Q1

REPORT INFORMATION
  Report Type: Spontaneous
  Country: US (occurrence: None)
  Receive Date: 20130308
  Receipt Date: 20130308
  Transmission Date: 20140127
  Serious: Yes (Life-Threatening)
  Sender: FDA-Public Use
  Company Number: None

PATIENT
  Age: 17 Year
  Sex: Female
  Weight: 70.76 kg

DRUGS (9)
  1. ATIVAN [Suspect]
     Indication: ANXIETY
     Dates: start: 20130304, end: 20130304
  2. ORTHO-NOVUM [Concomitant]
  3. SOLODYN [Concomitant]
  4. BROMFED DM [Concomitant]
  5. POLYETHYLENE GLYCOL [Concomitant]
  6. DIFFERIN 0.3% TOPICAL GEL [Concomitant]
  7. DIFFERIN 0.1% LOTION [Concomitant]
  8. DUAC BASE [Concomitant]
  9. TOPICAL GEL EXTENDED RELEASE [Concomitant]

REACTIONS (4)
  - Disorientation [None]
  - Amnesia [None]
  - Sudden onset of sleep [None]
  - Somnolence [None]
